FAERS Safety Report 6170596-0 (Version None)
Quarter: 2009Q2

REPORT INFORMATION
  Report Type: 
  Country: None (occurrence: None)
  Receive Date: 20090428
  Receipt Date: 20090420
  Transmission Date: 20091009
  Serious: Yes (Hospitalization, Other)
  Sender: FDA-Public Use
  Company Number: US-ELI_LILLY_AND_COMPANY-US200904004225

PATIENT
  Sex: Female

DRUGS (4)
  1. FORTEO [Suspect]
     Indication: ARTHRITIS
  2. NITROGLYCERIN [Concomitant]
     Dosage: UNK, 2/D
  3. ZOCOR [Concomitant]
  4. SILYBUM MARIANUM [Concomitant]
     Indication: LIVER DISORDER

REACTIONS (6)
  - FALL [None]
  - FEELING ABNORMAL [None]
  - MALAISE [None]
  - MYOCARDIAL INFARCTION [None]
  - MYODESOPSIA [None]
  - PAIN [None]
